FAERS Safety Report 4353825-5 (Version None)
Quarter: 2004Q2

REPORT INFORMATION
  Report Type: 
  Country: None (occurrence: None)
  Receive Date: 20040430
  Receipt Date: 20040128
  Transmission Date: 20050107
  Serious: Yes (Other)
  Sender: FDA-Public Use
  Company Number: DE-JNJFOC-20040105398

PATIENT
  Age: 33 Year
  Sex: Female

DRUGS (8)
  1. REMICADE [Suspect]
     Indication: CROHN'S DISEASE
     Dosage: INTRAVENOUS
     Route: 042
     Dates: start: 20020826, end: 20020826
  2. PREDNISOLONE [Concomitant]
  3. .... [Concomitant]
  4. AZATHIOPRINE [Concomitant]
  5. PENTASA [Concomitant]
  6. OMEPRAZOLE [Concomitant]
  7. SANDOCAL (SANDOCAL 1000) [Concomitant]
  8. DIFLUCAN [Concomitant]

REACTIONS (1)
  - INTESTINAL STENOSIS [None]
